FAERS Safety Report 10145191 (Version 1)
Quarter: 2014Q2

REPORT INFORMATION
  Report Type: Spontaneous
  Country: US (occurrence: US)
  Receive Date: 20140501
  Receipt Date: 20140501
  Transmission Date: 20141212
  Serious: No
  Sender: FDA-Public Use
  Company Number: US-BIOGENIDEC-2014BI036761

PATIENT
  Age: 44 Year
  Sex: Female
  Weight: 90 kg

DRUGS (14)
  1. TECFIDERA [Suspect]
     Indication: MULTIPLE SCLEROSIS
     Route: 048
     Dates: start: 201310
  2. HYOSCYAMINE [Concomitant]
  3. DICYCLOMINE [Concomitant]
  4. ONDANSTRON [Concomitant]
  5. ATORVASTATIN [Concomitant]
  6. LORATADINE [Concomitant]
  7. AMOX TR-POTASSIUM CLAV [Concomitant]
  8. BENZONATATE [Concomitant]
  9. CITALOPRAM [Concomitant]
  10. IBUPROFEN [Concomitant]
  11. METHYLPHENIDATE [Concomitant]
  12. VALCYCLOVIR [Concomitant]
  13. OXYBUTYNIN [Concomitant]
  14. TRAMADOL [Concomitant]

REACTIONS (7)
  - Upper respiratory tract infection [Unknown]
  - Dehydration [Recovered/Resolved]
  - Anxiety [Recovered/Resolved]
  - Fatigue [Recovered/Resolved]
  - Headache [Recovered/Resolved]
  - Abdominal pain [Recovered/Resolved]
  - Diarrhoea [Recovered/Resolved]
